FAERS Safety Report 13329808 (Version 1)
Quarter: 2017Q1

REPORT INFORMATION
  Report Type: Spontaneous
  Country: US (occurrence: US)
  Receive Date: 20170313
  Receipt Date: 20170313
  Transmission Date: 20170428
  Serious: No
  Sender: FDA-Public Use
  Company Number: US-PFIZER INC-2017105896

PATIENT
  Age: 71 Year
  Sex: Female
  Weight: 63.49 kg

DRUGS (6)
  1. LEVOCETIRIZINE [Concomitant]
     Active Substance: LEVOCETIRIZINE
     Dosage: UNK
  2. ZYRTEC [Concomitant]
     Active Substance: CETIRIZINE HYDROCHLORIDE
     Dosage: UNK
  3. EPIPEN [Suspect]
     Active Substance: EPINEPHRINE
     Indication: URTICARIA
     Dosage: 0.3 MG, PRN
     Route: 030
     Dates: start: 20170227, end: 20170227
  4. EPIPEN [Suspect]
     Active Substance: EPINEPHRINE
     Indication: ECZEMA
  5. HYDROXYZINE [Concomitant]
     Active Substance: HYDROXYZINE HYDROCHLORIDE
     Indication: URTICARIA
     Dosage: UNK
  6. HYDROXYZINE [Concomitant]
     Active Substance: HYDROXYZINE HYDROCHLORIDE
     Indication: ECZEMA

REACTIONS (3)
  - Device use error [Unknown]
  - Feeling jittery [Unknown]
  - Nervousness [Unknown]

NARRATIVE: CASE EVENT DATE: 20170227
